FAERS Safety Report 7429952-2 (Version None)
Quarter: 2011Q2

REPORT INFORMATION
  Report Type: 
  Country: None (occurrence: None)
  Receive Date: 20110421
  Receipt Date: 20110115
  Transmission Date: 20111010
  Serious: No
  Sender: FDA-Public Use
  Company Number: US-TEVA-263625USA

PATIENT
  Sex: Female
  Weight: 68.1 kg

DRUGS (2)
  1. SEROQUEL [Suspect]
     Indication: BORDERLINE PERSONALITY DISORDER
     Dosage: 100 MILLIGRAM;
     Route: 048
     Dates: start: 20040101
  2. PLAN B ONE-STEP [Suspect]
     Indication: POST COITAL CONTRACEPTION
     Dosage: 1.5 MILLIGRAM;
     Route: 048
     Dates: start: 20110115, end: 20110115

REACTIONS (2)
  - HOT FLUSH [None]
  - DIZZINESS [None]
